FAERS Safety Report 19444213 (Version 1)
Quarter: 2021Q2

REPORT INFORMATION
  Report Type: Spontaneous
  Country: US (occurrence: US)
  Receive Date: 20210621
  Receipt Date: 20210621
  Transmission Date: 20210717
  Serious: No
  Sender: FDA-Public Use
  Company Number: US-SA-2021SA203237

PATIENT
  Age: 54 Year
  Sex: Female

DRUGS (25)
  1. NOVOLOG [Concomitant]
     Active Substance: INSULIN ASPART
  2. SPIRIVA [Concomitant]
     Active Substance: TIOTROPIUM BROMIDE MONOHYDRATE
  3. XARELTO [Concomitant]
     Active Substance: RIVAROXABAN
  4. DILTIAZEM. [Concomitant]
     Active Substance: DILTIAZEM
  5. POLYMYXIN B. [Concomitant]
     Active Substance: POLYMYXIN B
  6. XANAX [Concomitant]
     Active Substance: ALPRAZOLAM
  7. SYNTHROID [Concomitant]
     Active Substance: LEVOTHYROXINE SODIUM
  8. KETOROLAC [Concomitant]
     Active Substance: KETOROLAC TROMETHAMINE
  9. SERTRALINE [Concomitant]
     Active Substance: SERTRALINE HYDROCHLORIDE
  10. ONDANSETRON [Concomitant]
     Active Substance: ONDANSETRON
  11. TRIMETHOPRIM. [Concomitant]
     Active Substance: TRIMETHOPRIM
  12. LEVEMIR [Concomitant]
     Active Substance: INSULIN DETEMIR
  13. METFORMIN [Concomitant]
     Active Substance: METFORMIN HYDROCHLORIDE
     Indication: TYPE 2 DIABETES MELLITUS
  14. GAMMAPLEX [Concomitant]
     Active Substance: HUMAN IMMUNOGLOBULIN G
  15. DULERA [Concomitant]
     Active Substance: FORMOTEROL FUMARATE DIHYDRATE\MOMETASONE FUROATE
  16. ZYFLO [Concomitant]
     Active Substance: ZILEUTON
  17. ALPRAZOLAM. [Concomitant]
     Active Substance: ALPRAZOLAM
  18. ZOLPIDEM [Concomitant]
     Active Substance: ZOLPIDEM TARTRATE
  19. THEOPHYLLINE [Concomitant]
     Active Substance: THEOPHYLLINE ANHYDROUS
  20. MIRTAZAPINE. [Concomitant]
     Active Substance: MIRTAZAPINE
  21. GABAPENTIN. [Concomitant]
     Active Substance: GABAPENTIN
  22. DUPIXENT [Suspect]
     Active Substance: DUPILUMAB
     Dosage: UNK
     Route: 058
     Dates: start: 20191231
  23. PROPAFENONE. [Concomitant]
     Active Substance: PROPAFENONE
  24. PREDNISOLONE. [Concomitant]
     Active Substance: PREDNISOLONE
  25. HYDROXYCHLOROQUINE [Concomitant]
     Active Substance: HYDROXYCHLOROQUINE

REACTIONS (1)
  - Wrong technique in product usage process [Unknown]
